FAERS Safety Report 20689658 (Version 2)
Quarter: 2022Q2

REPORT INFORMATION
  Report Type: Spontaneous
  Country: US (occurrence: None)
  Receive Date: 20220408
  Receipt Date: 20220524
  Transmission Date: 20220721
  Serious: Yes (Other)
  Sender: FDA-Public Use
  Company Number: 2022A137062

PATIENT
  Age: 70 Year
  Sex: Male

DRUGS (1)
  1. EVUSHELD [Suspect]
     Active Substance: CILGAVIMAB\TIXAGEVIMAB
     Indication: COVID-19 prophylaxis
     Route: 030
     Dates: start: 20220329

REACTIONS (4)
  - Deep vein thrombosis [Unknown]
  - Pain in extremity [Unknown]
  - Swelling [Unknown]
  - Erythema [Unknown]

NARRATIVE: CASE EVENT DATE: 20220330
